FAERS Safety Report 13800724 (Version 1)
Quarter: 2017Q3

REPORT INFORMATION
  Report Type: Spontaneous
  Country: CA (occurrence: CA)
  Receive Date: 20170727
  Receipt Date: 20170727
  Transmission Date: 20171127
  Serious: Yes (Other)
  Sender: FDA-Public Use
  Company Number: CA-B.I. PHARMACEUTICALS,INC./RIDGEFIELD-2017-BI-024448

PATIENT
  Age: 60 Year
  Sex: Male
  Weight: 132.4 kg

DRUGS (39)
  1. GLUCOBAY [Concomitant]
     Active Substance: ACARBOSE
     Indication: PRODUCT USED FOR UNKNOWN INDICATION
     Route: 048
  2. CORTEF (HYDROCORTISONE) [Concomitant]
     Indication: PRODUCT USED FOR UNKNOWN INDICATION
     Route: 048
  3. PERCOCET [Concomitant]
     Active Substance: ACETAMINOPHEN\OXYCODONE HYDROCHLORIDE
     Indication: PRODUCT USED FOR UNKNOWN INDICATION
     Dosage: DOSE: 5-325 MILLIGRAM
     Route: 048
  4. ELTROXIN [Concomitant]
     Active Substance: LEVOTHYROXINE
     Indication: PRODUCT USED FOR UNKNOWN INDICATION
     Route: 065
  5. ASPIRIN EC [Concomitant]
     Active Substance: ASPIRIN
     Indication: PRODUCT USED FOR UNKNOWN INDICATION
     Route: 065
  6. DIAZEPAM. [Concomitant]
     Active Substance: DIAZEPAM
     Indication: PRODUCT USED FOR UNKNOWN INDICATION
     Route: 065
  7. ZINC. [Concomitant]
     Active Substance: ZINC
     Indication: PRODUCT USED FOR UNKNOWN INDICATION
     Route: 065
  8. CORTICOSTEROIDS [Concomitant]
     Active Substance: CORTICOSTEROID NOS
     Indication: SKIN DISORDER
     Route: 065
  9. TRAJENTA [Suspect]
     Active Substance: LINAGLIPTIN
     Indication: TYPE 2 DIABETES MELLITUS
     Route: 065
  10. GLUMETZA [Concomitant]
     Active Substance: METFORMIN HYDROCHLORIDE
     Indication: PRODUCT USED FOR UNKNOWN INDICATION
     Route: 065
  11. LANTUS [Concomitant]
     Active Substance: INSULIN GLARGINE
     Indication: PRODUCT USED FOR UNKNOWN INDICATION
     Route: 065
  12. NORVASC [Concomitant]
     Active Substance: AMLODIPINE BESYLATE
     Indication: PRODUCT USED FOR UNKNOWN INDICATION
     Route: 048
  13. AXIRON [Concomitant]
     Active Substance: TESTOSTERONE
     Indication: ANAEMIA
     Route: 065
  14. DULCOLAX NOS [Concomitant]
     Active Substance: BISACODYL OR DOCUSATE SODIUM
     Indication: PRODUCT USED FOR UNKNOWN INDICATION
     Route: 065
  15. GLARGINE INSULIN [Suspect]
     Active Substance: INSULIN GLARGINE
     Indication: PRODUCT USED FOR UNKNOWN INDICATION
     Route: 065
  16. SYNTHROID [Concomitant]
     Active Substance: LEVOTHYROXINE SODIUM
     Indication: PRODUCT USED FOR UNKNOWN INDICATION
     Route: 048
  17. VITAMIN D3 [Concomitant]
     Active Substance: CHOLECALCIFEROL
     Dosage: 60 000 IU
     Route: 065
  18. CRESTOR [Concomitant]
     Active Substance: ROSUVASTATIN CALCIUM
     Indication: PRODUCT USED FOR UNKNOWN INDICATION
     Route: 048
  19. CYTOMEL [Concomitant]
     Active Substance: LIOTHYRONINE SODIUM
     Indication: PRODUCT USED FOR UNKNOWN INDICATION
     Route: 065
  20. METOPROLOL. [Concomitant]
     Active Substance: METOPROLOL
     Route: 048
  21. VITAMIN E [Concomitant]
     Active Substance: .ALPHA.-TOCOPHEROL
     Indication: PRODUCT USED FOR UNKNOWN INDICATION
     Route: 065
  22. PANTOPRAZOLE (TECTA) [Concomitant]
     Indication: PRODUCT USED FOR UNKNOWN INDICATION
     Route: 048
  23. NORVASC [Concomitant]
     Active Substance: AMLODIPINE BESYLATE
     Route: 048
  24. ANDROGEL [Concomitant]
     Active Substance: TESTOSTERONE
     Indication: ANAEMIA
     Dosage: DOSE: 25MG/ 2.5 G
     Route: 065
  25. VITAMIN D3 [Concomitant]
     Active Substance: CHOLECALCIFEROL
     Indication: PRODUCT USED FOR UNKNOWN INDICATION
     Dosage: 50,00 IU
  26. OLMETEC (OLMESARTAN MEDOXOMIL) [Concomitant]
     Active Substance: OLMESARTAN MEDOXOMIL
     Indication: PRODUCT USED FOR UNKNOWN INDICATION
     Route: 048
  27. METOPROLOL. [Concomitant]
     Active Substance: METOPROLOL
     Indication: PRODUCT USED FOR UNKNOWN INDICATION
     Route: 048
  28. GENOTROPIN [Concomitant]
     Active Substance: SOMATROPIN
     Indication: HYPOPITUITARISM
     Route: 058
  29. SOLU-MEDROL [Concomitant]
     Active Substance: METHYLPREDNISOLONE SODIUM SUCCINATE
     Indication: PRODUCT USED FOR UNKNOWN INDICATION
     Dosage: VIAL
     Route: 065
  30. BASAGLAR INSULIN KWIKPEN [Concomitant]
     Indication: PRODUCT USED FOR UNKNOWN INDICATION
     Dosage: 80 OR 18 (TBC) UNITS INJ. AT NIGHT
     Route: 065
  31. TARGIN [Concomitant]
     Active Substance: NALOXONE HYDROCHLORIDE\OXYCODONE HYDROCHLORIDE
     Indication: PRODUCT USED FOR UNKNOWN INDICATION
     Dosage: STRENGTH:  20/10 MG
     Route: 065
  32. CLOBETASOL [Concomitant]
     Active Substance: CLOBETASOL
     Indication: PRODUCT USED FOR UNKNOWN INDICATION
     Route: 065
  33. REACTINE [Concomitant]
     Active Substance: CETIRIZINE HYDROCHLORIDE
     Indication: PRODUCT USED FOR UNKNOWN INDICATION
     Route: 065
  34. GABAPENTIN. [Concomitant]
     Active Substance: GABAPENTIN
     Indication: PRODUCT USED FOR UNKNOWN INDICATION
     Route: 065
  35. CORTEF (HYDROCORTISONE) [Concomitant]
     Route: 048
  36. TICAGRELOR. [Concomitant]
     Active Substance: TICAGRELOR
     Indication: PRODUCT USED FOR UNKNOWN INDICATION
     Route: 048
  37. MAGNESIUM GLYCENATE [Concomitant]
     Indication: PRODUCT USED FOR UNKNOWN INDICATION
     Route: 065
  38. VICTOZA [Concomitant]
     Active Substance: LIRAGLUTIDE
     Indication: PRODUCT USED FOR UNKNOWN INDICATION
     Dosage: DOSE: 6 MG/ML PEN
     Route: 065
  39. RAAS BLOCKADE [Concomitant]
     Indication: URINE ALBUMIN/CREATININE RATIO
     Route: 065

REACTIONS (46)
  - Neurodermatitis [Unknown]
  - Haemorrhoids [Not Recovered/Not Resolved]
  - Migraine [Unknown]
  - Multiple allergies [Unknown]
  - Coronary artery disease [Unknown]
  - Hypertension [Unknown]
  - Hypopituitarism [Unknown]
  - Urine albumin/creatinine ratio [Unknown]
  - Disability [Unknown]
  - Erectile dysfunction [Unknown]
  - Osteoporosis [Unknown]
  - Infection [Unknown]
  - Fatigue [Unknown]
  - Gastrooesophageal reflux disease [Unknown]
  - Osteonecrosis [Unknown]
  - Large intestine polyp [Unknown]
  - Pain [Unknown]
  - Angioplasty [Unknown]
  - Drug intolerance [Unknown]
  - Central obesity [Unknown]
  - Abscess of salivary gland [Unknown]
  - Cataract [Unknown]
  - Chronic kidney disease [Unknown]
  - Rathke^s cleft cyst [Unknown]
  - Growth hormone deficiency [Unknown]
  - Hypogonadism [Unknown]
  - Hypothyroidism [Unknown]
  - Skin disorder [Unknown]
  - Anaemia [Unknown]
  - Empty sella syndrome [Unknown]
  - Insulin-like growth factor increased [Unknown]
  - Blood glucose increased [Unknown]
  - Weight increased [Unknown]
  - Eating disorder [Unknown]
  - Obesity [Unknown]
  - Cataract [Unknown]
  - Hip arthroplasty [Unknown]
  - Syringe issue [Unknown]
  - Apnoea test [Unknown]
  - Hypopituitarism [Unknown]
  - Hypoglycaemia [Unknown]
  - Skin lesion [Unknown]
  - Skin wound [Unknown]
  - Dizziness [Unknown]
  - Glycosylated haemoglobin increased [Unknown]
  - Microalbuminuria [Unknown]

NARRATIVE: CASE EVENT DATE: 2012
